FAERS Safety Report 11368802 (Version 1)
Quarter: 2015Q3

REPORT INFORMATION
  Report Type: Spontaneous
  Country: US (occurrence: US)
  Receive Date: 20150812
  Receipt Date: 20150812
  Transmission Date: 20151125
  Serious: Yes (Hospitalization)
  Sender: FDA-Public Use
  Company Number: US-ASTRAZENECA-2015SE76356

PATIENT
  Age: 42 Year
  Sex: Male
  Weight: 99.8 kg

DRUGS (28)
  1. SEROQUEL [Suspect]
     Active Substance: QUETIAPINE FUMARATE
     Indication: BIPOLAR DISORDER
     Dosage: 25MG THREE TIMES A DAY AND 200 MG AT NIGHT
     Route: 048
     Dates: start: 2008
  2. SEROQUEL [Suspect]
     Active Substance: QUETIAPINE FUMARATE
     Indication: ANXIETY
     Dosage: 25MG THREE TIMES A DAY AND 200 MG AT NIGHT
     Route: 048
     Dates: start: 2008
  3. LANTUS [Concomitant]
     Active Substance: INSULIN GLARGINE
     Indication: DIABETES MELLITUS
     Route: 058
     Dates: start: 201506
  4. NOVALIN [Concomitant]
     Indication: DIABETES MELLITUS
     Dosage: THREE TIMES A DAY
     Route: 058
     Dates: start: 201506
  5. SEROQUEL [Suspect]
     Active Substance: QUETIAPINE FUMARATE
     Indication: ANXIETY
     Route: 048
     Dates: start: 201503, end: 201503
  6. SEROQUEL [Suspect]
     Active Substance: QUETIAPINE FUMARATE
     Indication: DEPRESSION
     Route: 048
     Dates: start: 201503, end: 201503
  7. SEROQUEL [Suspect]
     Active Substance: QUETIAPINE FUMARATE
     Indication: DEPRESSION
     Route: 048
     Dates: start: 2008
  8. SEROQUEL [Suspect]
     Active Substance: QUETIAPINE FUMARATE
     Indication: BIPOLAR DISORDER
     Dosage: 25MG THREE TIMES A DAY AND 200 MG AT NIGHT
     Route: 048
     Dates: start: 2008
  9. BUPROPION HCL ER [Concomitant]
     Active Substance: BUPROPION HYDROCHLORIDE
     Indication: ATTENTION DEFICIT/HYPERACTIVITY DISORDER
     Route: 048
     Dates: start: 20150212
  10. TRAZODONE [Concomitant]
     Active Substance: TRAZODONE HYDROCHLORIDE
     Route: 048
     Dates: start: 2003
  11. GLIPIZIDE. [Concomitant]
     Active Substance: GLIPIZIDE
     Indication: DIABETES MELLITUS
     Route: 048
     Dates: start: 20141013
  12. OXYCODONE [Concomitant]
     Active Substance: OXYCODONE
     Route: 065
  13. ATENOLOL. [Suspect]
     Active Substance: ATENOLOL
     Indication: BLOOD PRESSURE ABNORMAL
     Route: 048
     Dates: start: 20141013
  14. SEROQUEL [Suspect]
     Active Substance: QUETIAPINE FUMARATE
     Indication: ANXIETY
     Dosage: 25MG THREE TIMES A DAY AND 200 MG AT NIGHT
     Route: 048
     Dates: start: 2008
  15. SEROQUEL [Suspect]
     Active Substance: QUETIAPINE FUMARATE
     Indication: ANXIETY
     Route: 048
     Dates: start: 2008
  16. OMEPRAZOLE OTC (PG) [Suspect]
     Active Substance: OMEPRAZOLE
     Indication: DYSPEPSIA
     Route: 048
     Dates: start: 2008
  17. ADDERALL [Suspect]
     Active Substance: AMPHETAMINE ASPARTATE\AMPHETAMINE SULFATE\DEXTROAMPHETAMINE SACCHARATE\DEXTROAMPHETAMINE SULFATE
     Indication: ATTENTION DEFICIT/HYPERACTIVITY DISORDER
     Route: 065
  18. DIVALPROEX SOD DR [Concomitant]
     Indication: DEPRESSION
     Route: 048
  19. DIVALPROEX SOD DR [Concomitant]
     Indication: ILL-DEFINED DISORDER
     Route: 048
  20. LISINOPRIL. [Suspect]
     Active Substance: LISINOPRIL
     Indication: CARDIAC DISORDER
     Route: 048
     Dates: start: 20141013
  21. SEROQUEL [Suspect]
     Active Substance: QUETIAPINE FUMARATE
     Indication: BIPOLAR DISORDER
     Route: 048
     Dates: start: 2008
  22. GABAPENTIN. [Concomitant]
     Active Substance: GABAPENTIN
     Indication: PAIN
     Route: 048
     Dates: start: 201502
  23. DICLOFENAC SODIUM. [Concomitant]
     Active Substance: DICLOFENAC SODIUM
     Indication: PAIN
     Route: 048
     Dates: start: 20150727
  24. SEROQUEL [Suspect]
     Active Substance: QUETIAPINE FUMARATE
     Indication: DEPRESSION
     Dosage: 25MG THREE TIMES A DAY AND 200 MG AT NIGHT
     Route: 048
     Dates: start: 2008
  25. DIVALPROEX SOD DR [Concomitant]
     Indication: ANXIETY
     Route: 048
  26. SEROQUEL [Suspect]
     Active Substance: QUETIAPINE FUMARATE
     Indication: DEPRESSION
     Dosage: 25MG THREE TIMES A DAY AND 200 MG AT NIGHT
     Route: 048
     Dates: start: 2008
  27. SEROQUEL [Suspect]
     Active Substance: QUETIAPINE FUMARATE
     Indication: BIPOLAR DISORDER
     Route: 048
     Dates: start: 201503, end: 201503
  28. OMEPRAZOLE. [Suspect]
     Active Substance: OMEPRAZOLE
     Indication: DYSPEPSIA
     Route: 048

REACTIONS (25)
  - Road traffic accident [Unknown]
  - Anger [Unknown]
  - Product use issue [Unknown]
  - Neck mass [Unknown]
  - Myocardial infarction [Unknown]
  - Tachyphrenia [Unknown]
  - Neuropathy peripheral [Unknown]
  - Skin graft infection [Unknown]
  - Post-traumatic stress disorder [Unknown]
  - Obsessive-compulsive disorder [Unknown]
  - Insomnia [Unknown]
  - Feeling abnormal [Unknown]
  - Bipolar disorder [Unknown]
  - Off label use [Unknown]
  - Diabetes mellitus inadequate control [Unknown]
  - Anxiety [Unknown]
  - Restlessness [Unknown]
  - Abnormal behaviour [Unknown]
  - Intentional product misuse [Unknown]
  - Cerebrovascular stenosis [Unknown]
  - Liposarcoma [Unknown]
  - Drug dependence [Unknown]
  - Oesophageal compression [Unknown]
  - Diabetes mellitus [Unknown]
  - Hypertension [Unknown]

NARRATIVE: CASE EVENT DATE: 2008
